FAERS Safety Report 9837361 (Version 1)
Quarter: 2013Q4

REPORT INFORMATION
  Report Type: Spontaneous
  Country: US (occurrence: None)
  Receive Date: 20131127
  Receipt Date: 20131127
  Transmission Date: 20140711
  Serious: No
  Sender: FDA-Public Use
  Company Number: 224247

PATIENT
  Age: 50 Year
  Sex: Male

DRUGS (1)
  1. PICATO [Suspect]
     Route: 061
     Dates: start: 20131006

REACTIONS (2)
  - Application site pain [None]
  - Application site erosion [None]
